FAERS Safety Report 8855617 (Version 2)
Quarter: 2013Q1

REPORT INFORMATION
  Report Type: Spontaneous
  Country: US (occurrence: US)
  Receive Date: 20121023
  Receipt Date: 20130102
  Transmission Date: 20140127
  Serious: No
  Sender: FDA-Public Use
  Company Number: US-AMGEN-USASP2012058890

PATIENT
  Age: 36 Year
  Sex: Male

DRUGS (2)
  1. ENBREL [Suspect]
     Indication: PSORIASIS
     Dosage: 50 MG, QWK
     Route: 058
     Dates: start: 20110801, end: 201207
  2. HUMIRA [Concomitant]
     Dosage: UNK

REACTIONS (2)
  - Drug effect incomplete [Unknown]
  - Psoriasis [Unknown]
